FAERS Safety Report 7362624-1 (Version None)
Quarter: 2011Q1

REPORT INFORMATION
  Report Type: 
  Country: None (occurrence: None)
  Receive Date: 20110320
  Receipt Date: 20100909
  Transmission Date: 20110831
  Serious: Yes (Hospitalization)
  Sender: FDA-Public Use
  Company Number: US-BAYER-200942400NA

PATIENT
  Sex: Female
  Weight: 63 kg

DRUGS (4)
  1. ADVIL LIQUI-GELS [Concomitant]
  2. YASMIN [Suspect]
     Indication: PRODUCT USED FOR UNKNOWN INDICATION
     Route: 048
     Dates: start: 20070920, end: 20071001
  3. YAZ [Suspect]
     Indication: MENORRHAGIA
  4. YAZ [Suspect]
     Indication: HORMONE REPLACEMENT THERAPY
     Dosage: UNK
     Route: 048
     Dates: start: 20070920, end: 20071015

REACTIONS (4)
  - HYPOAESTHESIA [None]
  - SWELLING [None]
  - PAIN [None]
  - DEEP VEIN THROMBOSIS [None]
